FAERS Safety Report 19716226 (Version 3)
Quarter: 2021Q3

REPORT INFORMATION
  Report Type: Spontaneous
  Country: GB (occurrence: GB)
  Receive Date: 20210818
  Receipt Date: 20210907
  Transmission Date: 20211014
  Serious: Yes (Hospitalization, Other)
  Sender: FDA-Public Use
  Company Number: GB-TEVA-2021-GB-1881258

PATIENT
  Age: 43 Year
  Sex: Female

DRUGS (28)
  1. LACTULOSE. [Concomitant]
     Active Substance: LACTULOSE
     Indication: PROPHYLAXIS
     Dosage: 20 ML DAILY;
     Route: 048
  2. MIRTAZAPINE. [Concomitant]
     Active Substance: MIRTAZAPINE
     Dosage: 45 MILLIGRAM DAILY;
     Route: 048
  3. SALBUTAMOL [Concomitant]
     Active Substance: ALBUTEROL
     Dosage: 2 PUFF
     Route: 055
  4. SODIUM PICOSULPHATE [Concomitant]
     Active Substance: SODIUM PICOSULFATE
     Indication: CONSTIPATION
     Dosage: 10 MILLIGRAM DAILY; 10 MILLIGRAM PER 10 MILLILITRE, QD
     Route: 048
  5. MORPHINE [Concomitant]
     Active Substance: MORPHINE
     Indication: CANCER PAIN
     Dosage: 5MG
     Route: 048
     Dates: start: 20181002, end: 20181002
  6. OMEPRAZOLE. [Concomitant]
     Active Substance: OMEPRAZOLE
     Dosage: 40 MILLIGRAM DAILY;
     Route: 048
     Dates: start: 201710
  7. LINEZOLID. [Concomitant]
     Active Substance: LINEZOLID
     Indication: DEVICE RELATED INFECTION
     Dosage: MULTIPLE 1 DAYS
     Route: 048
     Dates: start: 20191125, end: 20191130
  8. CLENIL MODULITE [Concomitant]
     Active Substance: BECLOMETHASONE DIPROPIONATE
     Indication: PRODUCT USED FOR UNKNOWN INDICATION
     Dosage: 2 DOSAGE FORMS DAILY; 2 OT, QD (DOSE 2 PUFF)
     Route: 055
  9. METFORMIN [Concomitant]
     Active Substance: METFORMIN HYDROCHLORIDE
     Dosage: 1000 MILLIGRAM DAILY;
     Route: 048
  10. RAMIPRIL. [Concomitant]
     Active Substance: RAMIPRIL
     Dosage: 1.25 MILLIGRAM DAILY;
     Route: 048
  11. DOCETAXEL. [Suspect]
     Active Substance: DOCETAXEL
     Indication: HER2 POSITIVE BREAST CANCER
     Dosage: 148 MG
     Route: 042
     Dates: start: 20171108, end: 20180131
  12. PERTUZUMAB. [Suspect]
     Active Substance: PERTUZUMAB
     Indication: BREAST CANCER METASTATIC
  13. TRASTUZUMAB. [Suspect]
     Active Substance: TRASTUZUMAB
     Indication: BREAST CANCER METASTATIC
  14. CLENIL MODULITE [Concomitant]
     Active Substance: BECLOMETHASONE DIPROPIONATE
     Indication: CANCER PAIN
     Dosage: 4 DOSAGE FORMS DAILY; 2 PUFF
     Route: 055
  15. ONDANSETRON [Concomitant]
     Active Substance: ONDANSETRON
     Dosage: 4MG
     Dates: start: 20181002, end: 20181002
  16. PERTUZUMAB. [Suspect]
     Active Substance: PERTUZUMAB
     Indication: HER2 POSITIVE BREAST CANCER
     Dosage: 840 MG
     Route: 042
     Dates: start: 20181120
  17. ERYTHROMYCIN. [Concomitant]
     Active Substance: ERYTHROMYCIN
     Route: 048
     Dates: start: 2020
  18. COLECALCIFEROL [Concomitant]
     Active Substance: CHOLECALCIFEROL
     Indication: PRODUCT USED FOR UNKNOWN INDICATION
     Dosage: 1 DF,0.5
     Route: 048
  19. METFORMIN [Concomitant]
     Active Substance: METFORMIN HYDROCHLORIDE
     Dosage: 500 MILLIGRAM DAILY;
     Route: 048
  20. SIMVASTATIN. [Concomitant]
     Active Substance: SIMVASTATIN
     Dosage: 40 MILLIGRAM DAILY;
     Route: 048
  21. CALCIUM CARBONATE. [Concomitant]
     Active Substance: CALCIUM CARBONATE
     Indication: PRODUCT USED FOR UNKNOWN INDICATION
     Dosage: 1 DF,0.5
     Route: 048
  22. CLONAZEPAM. [Concomitant]
     Active Substance: CLONAZEPAM
     Indication: MUSCLE SPASMS
     Dosage: 250 MILLIGRAM DAILY;
     Route: 048
     Dates: start: 2020
  23. NITROFURANTOIN. [Concomitant]
     Active Substance: NITROFURANTOIN
     Indication: URINARY TRACT INFECTION
     Dosage: 200 MILLIGRAM DAILY;
     Route: 048
     Dates: start: 20181103, end: 20181109
  24. DOCETAXEL. [Suspect]
     Active Substance: DOCETAXEL
     Indication: BREAST CANCER METASTATIC
     Dosage: 592MG
     Route: 065
  25. TRASTUZUMAB. [Suspect]
     Active Substance: TRASTUZUMAB
     Indication: HER2 POSITIVE BREAST CANCER
     Dosage: 8 MG
     Route: 042
     Dates: start: 20171108
  26. OXYCODONE [Concomitant]
     Active Substance: OXYCODONE
     Indication: CANCER PAIN
     Dosage: 220 MILLIGRAM DAILY;
     Route: 048
  27. QUETIAPINE. [Concomitant]
     Active Substance: QUETIAPINE
     Indication: DEPRESSED MOOD
     Dosage: 150 MILLIGRAM DAILY;
     Route: 048
     Dates: start: 2020
  28. QUETIAPINE. [Concomitant]
     Active Substance: QUETIAPINE
     Dosage: 100 MILLIGRAM DAILY;
     Route: 048
     Dates: end: 2020

REACTIONS (11)
  - Off label use [Unknown]
  - Diarrhoea [Recovered/Resolved]
  - Device related infection [Recovered/Resolved]
  - Abdominal rigidity [Recovered/Resolved]
  - Abdominal rigidity [Recovered/Resolved]
  - Muscle spasms [Recovered/Resolved with Sequelae]
  - Abdominal rigidity [Recovered/Resolved with Sequelae]
  - Muscle spasms [Recovered/Resolved]
  - Vomiting [Recovered/Resolved]
  - Device related infection [Recovered/Resolved]
  - Muscle spasms [Recovered/Resolved]

NARRATIVE: CASE EVENT DATE: 20181001
